FAERS Safety Report 4925273-8 (Version None)
Quarter: 2006Q1

REPORT INFORMATION
  Report Type: 
  Country: None (occurrence: None)
  Receive Date: 20060228
  Receipt Date: 20060203
  Transmission Date: 20060701
  Serious: Yes (Life-Threatening)
  Sender: FDA-Public Use
  Company Number: US-GLAXOSMITHKLINE-A0592713A

PATIENT
  Age: 50 Year
  Sex: Male
  Weight: 107.3 kg

DRUGS (11)
  1. REQUIP [Suspect]
     Indication: RESTLESS LEGS SYNDROME
     Route: 048
  2. PROVIGIL [Concomitant]
  3. KLONOPIN [Concomitant]
  4. RISPERDAL [Concomitant]
  5. CARDIZEM [Concomitant]
  6. ATACAND [Concomitant]
  7. ALBUTEROL [Concomitant]
  8. FLONASE [Concomitant]
  9. ADVAIR DISKUS 100/50 [Concomitant]
  10. UROSEPT [Concomitant]
  11. COMBIVENT [Concomitant]

REACTIONS (2)
  - RASH GENERALISED [None]
  - RESPIRATORY TRACT IRRITATION [None]
